FAERS Safety Report 15718011 (Version 1)
Quarter: 2018Q4

REPORT INFORMATION
  Report Type: Spontaneous
  Country: US (occurrence: US)
  Receive Date: 20181213
  Receipt Date: 20181213
  Transmission Date: 20190205
  Serious: No
  Sender: FDA-Public Use
  Company Number: US-SA-2018SA338299

PATIENT
  Age: 90 Year
  Sex: Female

DRUGS (7)
  1. COMBIGAN [Concomitant]
     Active Substance: BRIMONIDINE TARTRATE\TIMOLOL MALEATE
  2. REPAGLINIDE. [Concomitant]
     Active Substance: REPAGLINIDE
  3. DONEPEZIL. [Concomitant]
     Active Substance: DONEPEZIL
  4. TRAVATAN Z [Concomitant]
     Active Substance: TRAVOPROST
  5. LOSARTAN. [Concomitant]
     Active Substance: LOSARTAN
  6. LANTUS [Concomitant]
     Active Substance: INSULIN GLARGINE
  7. DUPIXENT [Suspect]
     Active Substance: DUPILUMAB
     Indication: DERMATITIS ATOPIC
     Dosage: 300 MG, QOW
     Route: 058
     Dates: start: 20181031

REACTIONS (1)
  - Underdose [Unknown]

NARRATIVE: CASE EVENT DATE: 20181130
